FAERS Safety Report 12141635 (Version 2)
Quarter: 2016Q2

REPORT INFORMATION
  Report Type: Spontaneous
  Country: US (occurrence: US)
  Receive Date: 20160303
  Receipt Date: 20160406
  Transmission Date: 20160815
  Serious: Yes (Hospitalization, Other)
  Sender: FDA-Public Use
  Company Number: US-ENDO PHARMACEUTICALS INC.-2016-001607

PATIENT
  Sex: Male

DRUGS (2)
  1. PREDNISONE TABLETS [Suspect]
     Active Substance: PREDNISONE
     Indication: PRODUCT USED FOR UNKNOWN INDICATION
     Route: 065
  2. PROGRAF [Suspect]
     Active Substance: TACROLIMUS\TACROLIMUS ANHYDROUS
     Indication: PRODUCT USED FOR UNKNOWN INDICATION
     Route: 065
     Dates: start: 20080803

REACTIONS (11)
  - Toe amputation [Recovered/Resolved]
  - Cholelithiasis [Recovered/Resolved]
  - Nephrolithiasis [Unknown]
  - Malaise [Unknown]
  - Cholecystectomy [Recovered/Resolved]
  - Sarcoidosis [Unknown]
  - Complications of transplanted heart [Unknown]
  - Neoplasm malignant [Unknown]
  - Hospitalisation [Unknown]
  - Osteoporosis [Unknown]
  - Osteonecrosis [Unknown]
